FAERS Safety Report 9433751 (Version 1)
Quarter: 2013Q3

REPORT INFORMATION
  Report Type: Spontaneous
  Country: US (occurrence: None)
  Receive Date: 20130729
  Receipt Date: 20130729
  Transmission Date: 20140515
  Serious: Yes (Other)
  Sender: FDA-Public Use
  Company Number: SYM-2013-07411

PATIENT
  Age: 81 Year
  Sex: Female

DRUGS (5)
  1. TARGRETIN [Suspect]
     Indication: MYCOSIS FUNGOIDES STAGE I
     Route: 048
  2. ONTAK [Suspect]
     Indication: MYCOSIS FUNGOIDES STAGE I
     Dosage: 3 IN 21 D
     Route: 042
  3. ACETAMINOPHEN (PARACETAMOL) (PARACETAMOL) [Concomitant]
  4. DEXAMETHASONE (DEXAMETHASONE) (DEXAMETHASONE) [Concomitant]
  5. DIPHENYDRAMINE (DIPHENHYRAMINE) (DIPHENHYDRAMINE) [Concomitant]

REACTIONS (2)
  - Lymphopenia [None]
  - Haematotoxicity [None]
